FAERS Safety Report 5783138-6 (Version None)
Quarter: 2008Q2

REPORT INFORMATION
  Report Type: 
  Country: None (occurrence: None)
  Receive Date: 20080624
  Receipt Date: 20080522
  Transmission Date: 20081010
  Serious: Yes (Hospitalization)
  Sender: FDA-Public Use
  Company Number: US-ROCHE-570114

PATIENT
  Sex: Female

DRUGS (1)
  1. KLONOPIN [Suspect]
     Indication: ANXIETY
     Dosage: FREQUENCY REPORTED AS: 1 DOSEFORM AT NIGHT
     Route: 065

REACTIONS (1)
  - CHOLECYSTITIS [None]
